FAERS Safety Report 4408350-X (Version None)
Quarter: 2004Q3

REPORT INFORMATION
  Report Type: 
  Country: None (occurrence: None)
  Receive Date: 20040722
  Receipt Date: 20040709
  Transmission Date: 20050211
  Serious: Yes (Hospitalization)
  Sender: FDA-Public Use
  Company Number: PERI00204002300

PATIENT
  Age: 82 Year
  Sex: Male
  Weight: 70 kg

DRUGS (1)
  1. COVERSYL (PERINDOPRIL) [Suspect]
     Indication: ESSENTIAL HYPERTENSION
     Dosage: 8 MG QD PO
     Route: 048
     Dates: start: 20040504, end: 20040518

REACTIONS (1)
  - HALLUCINATION, VISUAL [None]
